FAERS Safety Report 9497220 (Version 1)
Quarter: 2013Q3

REPORT INFORMATION
  Report Type: Spontaneous
  Country: US (occurrence: US)
  Receive Date: 20130904
  Receipt Date: 20130904
  Transmission Date: 20140515
  Serious: No
  Sender: FDA-Public Use
  Company Number: US-AMGEN-USASP2013055459

PATIENT
  Age: 66 Year
  Sex: Female

DRUGS (3)
  1. ENBREL [Suspect]
     Indication: RHEUMATOID ARTHRITIS
     Dosage: 50 MG, QWK
     Route: 065
     Dates: start: 20130804
  2. METHOTREXATE [Concomitant]
     Dosage: 6 MG, QWK
     Route: 030
  3. PLAQUENIL                          /00072602/ [Concomitant]
     Dosage: 200 MG, BID

REACTIONS (1)
  - Injection site mass [Recovered/Resolved]
